FAERS Safety Report 11539420 (Version 1)
Quarter: 2015Q3

REPORT INFORMATION
  Report Type: Spontaneous
  Country: US (occurrence: None)
  Receive Date: 20150922
  Receipt Date: 20150922
  Transmission Date: 20151125
  Serious: Yes (Other)
  Sender: FDA-Public Use
  Company Number: None

PATIENT
  Age: 54 Year
  Sex: Female
  Weight: 90.72 kg

DRUGS (11)
  1. VITAMIN E [Concomitant]
     Active Substance: .ALPHA.-TOCOPHEROL
  2. TURMERIC COMPLEX [Concomitant]
  3. MAG OX [Concomitant]
     Active Substance: MAGNESIUM OXIDE
  4. BLACK COHOSH [Concomitant]
     Active Substance: BLACK COHOSH
  5. ANORO ELLIPTA [Suspect]
     Active Substance: UMECLIDINIUM BROMIDE\VILANTEROL TRIFENATATE
     Indication: CHRONIC OBSTRUCTIVE PULMONARY DISEASE
     Dosage: 1 PUFF ONCE PER DAY
     Route: 055
     Dates: start: 20150301, end: 20150824
  6. FENUGREEK [Concomitant]
     Active Substance: FENUGREEK SEED
  7. THEO-24 [Concomitant]
     Active Substance: THEOPHYLLINE ANHYDROUS
  8. GREEN TEA EXTRACT [Concomitant]
  9. HIGH BLOOD PRESSURE MEDICINE (HCL) [Concomitant]
  10. DIETARY SUPPLEMENTS [Concomitant]
     Active Substance: DIETARY SUPPLEMENT
  11. CINNAMON. [Concomitant]
     Active Substance: CINNAMON

REACTIONS (6)
  - Visual impairment [None]
  - Nodule [None]
  - Arthritis [None]
  - Skin disorder [None]
  - Pain in extremity [None]
  - Arthralgia [None]

NARRATIVE: CASE EVENT DATE: 20150601
